FAERS Safety Report 8037605-5 (Version None)
Quarter: 2012Q1

REPORT INFORMATION
  Report Type: 
  Country: None (occurrence: None)
  Receive Date: 20120111
  Receipt Date: 20120106
  Transmission Date: 20120608
  Serious: Yes (Other)
  Sender: FDA-Public Use
  Company Number: US-PFIZER INC-2012004945

PATIENT
  Age: 62 Year
  Sex: Female
  Weight: 82.99 kg

DRUGS (5)
  1. LYRICA [Suspect]
     Indication: FIBROMYALGIA
     Dosage: 100 MG, 2X/DAY
     Route: 048
  2. TEMAZEPAM [Concomitant]
     Indication: SLEEP DISORDER
     Dosage: 30 MG
  3. GABAPENTIN [Suspect]
     Indication: FIBROMYALGIA
     Dosage: UNK
  4. FOLIC ACID [Concomitant]
     Dosage: 1 MG, DAILY
  5. HYDROXYCHLOROQUINE [Concomitant]
     Dosage: 400 MG

REACTIONS (4)
  - FEELING ABNORMAL [None]
  - DRUG INEFFECTIVE [None]
  - RHEUMATOID ARTHRITIS [None]
  - WEIGHT DECREASED [None]
